FAERS Safety Report 10309291 (Version 1)
Quarter: 2014Q3

REPORT INFORMATION
  Report Type: Spontaneous
  Country: US (occurrence: None)
  Receive Date: 20140714
  Receipt Date: 20140714
  Transmission Date: 20150326
  Serious: Yes (Hospitalization)
  Sender: FDA-Public Use
  Company Number: 2014RD000036

PATIENT
  Age: 57 Year
  Sex: Male
  Weight: 61.24 kg

DRUGS (9)
  1. IPRATROPIUM BROMIDE AND ALBUTEROL SULFATE [Suspect]
     Active Substance: ALBUTEROL SULFATE\IPRATROPIUM BROMIDE
     Indication: PRODUCT USED FOR UNKNOWN INDICATION
     Route: 055
     Dates: start: 20140606
  2. PROZAC [Concomitant]
     Active Substance: FLUOXETINE HYDROCHLORIDE
  3. REMERON [Concomitant]
     Active Substance: MIRTAZAPINE
  4. SYMBICORT [Concomitant]
     Active Substance: BUDESONIDE\FORMOTEROL FUMARATE DIHYDRATE
  5. TRICOR [Concomitant]
     Active Substance: FENOFIBRATE
  6. LOVAZA [Concomitant]
     Active Substance: OMEGA-3-ACID ETHYL ESTERS
  7. SPIRIVA [Concomitant]
     Active Substance: TIOTROPIUM BROMIDE MONOHYDRATE
  8. LIPITOR [Concomitant]
     Active Substance: ATORVASTATIN CALCIUM
  9. TRAZODONE [Concomitant]
     Active Substance: TRAZODONE HYDROCHLORIDE

REACTIONS (17)
  - Hypotension [None]
  - Diarrhoea [None]
  - Dysphonia [None]
  - Vision blurred [None]
  - Pharyngeal oedema [None]
  - Chest pain [None]
  - Productive cough [None]
  - Dyspnoea [None]
  - Lip swelling [None]
  - Urinary tract infection [None]
  - Heart rate increased [None]
  - Sinusitis [None]
  - Somnolence [None]
  - Swollen tongue [None]
  - Metabolic acidosis [None]
  - Bronchitis [None]
  - Constipation [None]

NARRATIVE: CASE EVENT DATE: 20140611
